FAERS Safety Report 4592572-1 (Version None)
Quarter: 2005Q1

REPORT INFORMATION
  Report Type: 
  Country: None (occurrence: None)
  Receive Date: 20050222
  Receipt Date: 20050207
  Transmission Date: 20050727
  Serious: Yes (Disabling)
  Sender: FDA-Public Use
  Company Number: 2005CG00292

PATIENT
  Age: 60 Year
  Sex: Male

DRUGS (2)
  1. CRESTOR [Suspect]
     Indication: HYPERCHOLESTEROLAEMIA
     Dosage: 1 DF QD PO
     Route: 048
     Dates: start: 20040115, end: 20041015
  2. FRACTAL [Concomitant]

REACTIONS (1)
  - TENDONITIS [None]
